FAERS Safety Report 6720477-6 (Version None)
Quarter: 2010Q2

REPORT INFORMATION
  Report Type: 
  Country: None (occurrence: None)
  Receive Date: 20100511
  Receipt Date: 20100426
  Transmission Date: 20101027
  Serious: Yes (Life-Threatening, Hospitalization, Other)
  Sender: FDA-Public Use
  Company Number: JP-ALLERGAN-0814539US

PATIENT
  Age: 2 Year
  Sex: Male

DRUGS (9)
  1. BOTULINUM TOXIN TYPE A [Suspect]
     Indication: TORTICOLLIS
     Dosage: 92 UNITS, SINGLE
     Route: 030
     Dates: start: 20080910, end: 20080910
  2. BOTULINUM TOXIN TYPE A [Suspect]
     Dosage: 51 UNITS, SINGLE
     Route: 030
     Dates: start: 20080723, end: 20080723
  3. PHENOBARBITAL TAB [Suspect]
     Indication: EPILEPSY
     Dosage: 50 MG, BID
     Route: 048
     Dates: start: 20061117
  4. TEGRETOL [Suspect]
     Indication: EPILEPSY
     Dosage: 100 MG, BID
     Route: 048
     Dates: start: 20060529
  5. CLARITHROMYCIN [Suspect]
     Indication: CHRONIC RESPIRATORY FAILURE
     Dosage: 30 MG, BID
     Route: 048
  6. CARBOCISTEINE [Suspect]
     Indication: DRUG USE FOR UNKNOWN INDICATION
  7. FAMOTIDINE [Concomitant]
     Indication: GASTRIC ULCER
     Dosage: 0.1 G, BID
     Route: 048
  8. AMBROXOL HYDROCHLORIDE [Concomitant]
     Indication: CHRONIC RESPIRATORY FAILURE
     Dosage: 3 G, TID
     Route: 048
  9. CLEMASTINE FUMARATE [Concomitant]
     Indication: CHRONIC RESPIRATORY FAILURE
     Dosage: 0.2 G, TID
     Route: 048

REACTIONS (2)
  - APNOEIC ATTACK [None]
  - CYANOSIS [None]
